FAERS Safety Report 20784470 (Version 1)
Quarter: 2022Q2

REPORT INFORMATION
  Report Type: Spontaneous
  Country: LT (occurrence: LT)
  Receive Date: 20220504
  Receipt Date: 20220504
  Transmission Date: 20220721
  Serious: Yes (Other)
  Sender: FDA-Public Use
  Company Number: LT-NOVARTISPH-NVSC2022LT101093

PATIENT
  Age: 54 Year
  Sex: Female

DRUGS (2)
  1. DABRAFENIB [Suspect]
     Active Substance: DABRAFENIB
     Indication: Malignant melanoma
     Dosage: UNK (150 MG X 2 AND 2 MG X 1)
     Route: 065
     Dates: start: 201605
  2. TRAMETINIB [Suspect]
     Active Substance: TRAMETINIB
     Indication: Malignant melanoma
     Dosage: UNK (150 MG X 2 AND 2 MG X 1)
     Route: 065
     Dates: start: 201605

REACTIONS (10)
  - Malignant melanoma [Not Recovered/Not Resolved]
  - Malignant neoplasm progression [Not Recovered/Not Resolved]
  - Metastases to lung [Unknown]
  - Metastases to neck [Unknown]
  - Metastases to the mediastinum [Unknown]
  - Metastases to central nervous system [Unknown]
  - Seizure [Unknown]
  - Brain oedema [Unknown]
  - Pyrexia [Unknown]
  - Lymphadenopathy [Unknown]

NARRATIVE: CASE EVENT DATE: 20171001
